FAERS Safety Report 5630081-9 (Version None)
Quarter: 2008Q1

REPORT INFORMATION
  Report Type: 
  Country: None (occurrence: None)
  Receive Date: 20080218
  Receipt Date: 20080213
  Transmission Date: 20080703
  Serious: Yes (Death, Life-Threatening, Hospitalization, Other)
  Sender: FDA-Public Use
  Company Number: PHHO2008FR01076

PATIENT
  Age: 55 Year
  Sex: Male

DRUGS (4)
  1. IMATINIB [Suspect]
     Indication: ACUTE LYMPHOCYTIC LEUKAEMIA
     Dates: start: 20060921, end: 20061225
  2. EXJADE [Concomitant]
  3. NORADRENALINE [Concomitant]
  4. CORDARONE [Suspect]

REACTIONS (25)
  - ABDOMINAL PAIN [None]
  - ACUTE RESPIRATORY DISTRESS SYNDROME [None]
  - ANORECTAL DISORDER [None]
  - ASPIRATION [None]
  - DIARRHOEA [None]
  - DISSEMINATED INTRAVASCULAR COAGULATION [None]
  - GASTRITIS [None]
  - GENERALISED ERYTHEMA [None]
  - HAEMODYNAMIC INSTABILITY [None]
  - HEPATIC FAILURE [None]
  - ILEOCOLOSTOMY [None]
  - INTESTINAL ISCHAEMIA [None]
  - INTESTINAL RESECTION [None]
  - JAUNDICE [None]
  - LEUKOPENIA [None]
  - MULTI-ORGAN FAILURE [None]
  - PERITONITIS [None]
  - POLYURIA [None]
  - PROCTITIS [None]
  - RENAL FAILURE ACUTE [None]
  - SEPTIC SHOCK [None]
  - SURGERY [None]
  - THROMBOCYTOPENIA [None]
  - VENTRICULAR DYSKINESIA [None]
  - VOMITING [None]
